FAERS Safety Report 13296926 (Version 1)
Quarter: 2017Q1

REPORT INFORMATION
  Report Type: Spontaneous
  Country: US (occurrence: US)
  Receive Date: 20170306
  Receipt Date: 20170306
  Transmission Date: 20170428
  Serious: No
  Sender: FDA-Public Use
  Company Number: US-ASTRAZENECA-2017SE20593

PATIENT
  Age: 540 Month
  Sex: Female
  Weight: 60.3 kg

DRUGS (2)
  1. NEXIUM [Suspect]
     Active Substance: ESOMEPRAZOLE MAGNESIUM
     Indication: BARRETT^S OESOPHAGUS
     Dosage: 40 MILLIGRAMS DAILY BY MOUTH AND 20 MILLIGRAMS WHEN NECESSARY AT NIGHT
     Route: 048
  2. NEXIUM [Suspect]
     Active Substance: ESOMEPRAZOLE MAGNESIUM
     Indication: BARRETT^S OESOPHAGUS
     Dosage: 40 MILLIGRAMS DAILY BY MOUTH AND 20 MILLIGRAMS WHEN NECESSARY AT NIGHT
     Route: 048
     Dates: start: 2010

REACTIONS (7)
  - Anaemia [Recovered/Resolved]
  - Weight decreased [Unknown]
  - Off label use [Unknown]
  - Monoclonal gammopathy [Unknown]
  - Chest pain [Unknown]
  - Gastrooesophageal reflux disease [Unknown]
  - Product use issue [Unknown]

NARRATIVE: CASE EVENT DATE: 201001
